FAERS Safety Report 9622160 (Version 2)
Quarter: 2013Q4

REPORT INFORMATION
  Report Type: Spontaneous
  Country: US (occurrence: US)
  Receive Date: 20131015
  Receipt Date: 20131015
  Transmission Date: 20140711
  Serious: No
  Sender: FDA-Public Use
  Company Number: US-PURDUE-USA-2012-0085432

PATIENT
  Age: 36 Year
  Sex: Female

DRUGS (2)
  1. BUTRANS [Suspect]
     Indication: PAIN
     Dosage: 20 MCG/HR, UNK
     Route: 062
  2. BUTRANS [Suspect]
     Dosage: 10 MCG/HR, 2 PATCHES TOTAL 20 MCG/HR
     Route: 062

REACTIONS (8)
  - Device leakage [Unknown]
  - Application site haemorrhage [Recovering/Resolving]
  - Dizziness [Unknown]
  - Dysphagia [Unknown]
  - Feeling abnormal [Unknown]
  - Application site rash [Unknown]
  - Application site urticaria [Recovering/Resolving]
  - Extra dose administered [Recovered/Resolved]
